FAERS Safety Report 4295819-4 (Version None)
Quarter: 2004Q1

REPORT INFORMATION
  Report Type: 
  Country: None (occurrence: None)
  Receive Date: 20040216
  Receipt Date: 20031113
  Transmission Date: 20041129
  Serious: No
  Sender: FDA-Public Use
  Company Number: US-GLAXOSMITHKLINE-A0439633A

PATIENT
  Age: 37 Year
  Sex: Female
  Weight: 50 kg

DRUGS (3)
  1. LAMICTAL [Suspect]
     Indication: BIPOLAR DISORDER
     Dosage: 200MG TWICE PER DAY
     Route: 048
     Dates: start: 20021119, end: 20031111
  2. ADDERALL [Concomitant]
     Route: 048
     Dates: start: 20021119
  3. SEROQUEL [Concomitant]
     Dosage: 400MG AT NIGHT
     Route: 048
     Dates: start: 20021118

REACTIONS (1)
  - RASH [None]
